FAERS Safety Report 20573554 (Version 1)
Quarter: 2022Q1

REPORT INFORMATION
  Report Type: Spontaneous
  Country: ZA (occurrence: ZA)
  Receive Date: 20220309
  Receipt Date: 20220309
  Transmission Date: 20220423
  Serious: Yes (Other)
  Sender: FDA-Public Use
  Company Number: ZA-SA-SAC20220303001258

PATIENT
  Sex: Female

DRUGS (3)
  1. LEFLUNOMIDE [Suspect]
     Active Substance: LEFLUNOMIDE
     Dosage: 20 MG, BID
     Dates: start: 201603
  2. METHOTREXATE [Suspect]
     Active Substance: METHOTREXATE
     Dosage: 25 MG, QW
     Dates: start: 201503
  3. SULFASALAZINE [Suspect]
     Active Substance: SULFASALAZINE
     Dosage: UNK

REACTIONS (3)
  - Diabetes mellitus [Unknown]
  - Disease progression [Unknown]
  - Drug ineffective [Unknown]
